FAERS Safety Report 5786916-2 (Version None)
Quarter: 2008Q2

REPORT INFORMATION
  Report Type: 
  Country: None (occurrence: None)
  Receive Date: 20080625
  Receipt Date: 20080321
  Transmission Date: 20081010
  Serious: Yes (Hospitalization)
  Sender: FDA-Public Use
  Company Number: US-JNJFOC-20080603369

PATIENT
  Sex: Male
  Weight: 101 kg

DRUGS (14)
  1. IBUROFEN [Suspect]
     Indication: DRUG USE FOR UNKNOWN INDICATION
     Route: 048
  2. TYLENOL [Suspect]
     Route: 048
  3. TYLENOL [Suspect]
     Indication: DRUG USE FOR UNKNOWN INDICATION
     Route: 048
  4. ALEVE [Suspect]
     Indication: DRUG USE FOR UNKNOWN INDICATION
  5. MONOCLONAL ANTIBODIES [Concomitant]
     Indication: MALIGNANT MELANOMA
     Route: 042
  6. ZOCOR [Concomitant]
     Indication: HYPERCHOLESTEROLAEMIA
     Route: 048
  7. XANAX [Concomitant]
     Indication: ANXIETY
     Route: 048
  8. HYDROMORPHONE HCL [Concomitant]
     Indication: PAIN IN EXTREMITY
     Route: 048
  9. ATIVAN [Concomitant]
     Indication: NAUSEA
     Route: 048
  10. NEURONTIN [Concomitant]
     Indication: PAIN IN EXTREMITY
     Route: 065
  11. SENOKOT [Concomitant]
     Indication: CONSTIPATION
     Route: 048
  12. DURAGESIC-100 [Concomitant]
     Indication: PAIN IN EXTREMITY
     Route: 062
  13. COMPAZINE [Concomitant]
     Indication: NAUSEA
     Route: 048
  14. MORPHINE [Concomitant]
     Indication: PAIN

REACTIONS (1)
  - BLOOD CREATININE INCREASED [None]
